FAERS Safety Report 14265042 (Version 2)
Quarter: 2017Q4

REPORT INFORMATION
  Report Type: Spontaneous
  Country: US (occurrence: US)
  Receive Date: 20171208
  Receipt Date: 20171215
  Transmission Date: 20180321
  Serious: Yes (Other)
  Sender: FDA-Public Use
  Company Number: US-NOVOPROD-558091

PATIENT
  Age: 67 Year
  Sex: Female
  Weight: 62.59 kg

DRUGS (8)
  1. NOVOLIN 70/30 [Suspect]
     Active Substance: INSULIN HUMAN
     Indication: TYPE 2 DIABETES MELLITUS
     Dosage: 30 UNITS QAM AND 25 UNITS QPM
     Route: 058
     Dates: start: 201604
  2. LEVEMIR [Suspect]
     Active Substance: INSULIN DETEMIR
     Dosage: 30 U, QD AT BEDTIME
     Route: 058
     Dates: start: 2017, end: 2017
  3. LEVEMIR [Suspect]
     Active Substance: INSULIN DETEMIR
     Dosage: 35 U, QD AT BEDTIME
     Route: 058
     Dates: start: 2017
  4. LEVEMIR [Suspect]
     Active Substance: INSULIN DETEMIR
     Dosage: 15 U, QD AT BEDTIME
     Route: 058
     Dates: start: 2017, end: 2017
  5. LEVEMIR [Suspect]
     Active Substance: INSULIN DETEMIR
     Dosage: 25 U, QD AT BEDTIME
     Route: 058
     Dates: start: 2017, end: 2017
  6. LEVEMIR [Suspect]
     Active Substance: INSULIN DETEMIR
     Dosage: 20 U, QD AT BEDTIME
     Route: 058
     Dates: start: 2017, end: 2017
  7. LEVEMIR [Suspect]
     Active Substance: INSULIN DETEMIR
     Dosage: 10 U, QD AT BEDTIME
     Route: 058
     Dates: start: 2017, end: 2017
  8. LEVEMIR [Suspect]
     Active Substance: INSULIN DETEMIR
     Indication: TYPE 2 DIABETES MELLITUS
     Dosage: 5 U QD AT BEDTIME
     Route: 058
     Dates: start: 20170619, end: 2017

REACTIONS (3)
  - Blood glucose increased [Not Recovered/Not Resolved]
  - Blood creatinine increased [Not Recovered/Not Resolved]
  - Diabetes mellitus inadequate control [Not Recovered/Not Resolved]

NARRATIVE: CASE EVENT DATE: 201706
